FAERS Safety Report 8602962-5 (Version None)
Quarter: 2012Q3

REPORT INFORMATION
  Report Type: 
  Country: None (occurrence: None)
  Receive Date: 20120817
  Receipt Date: 20120814
  Transmission Date: 20120928
  Serious: Yes (Death, Life-Threatening)
  Sender: FDA-Public Use
  Company Number: BR-ROCHE-1094056

PATIENT
  Sex: Female
  Weight: 65 kg

DRUGS (3)
  1. TENECTEPLASE [Suspect]
     Indication: ACUTE MYOCARDIAL INFARCTION
     Dosage: 17.5 MG (50 MG, BOLUS)
     Route: 040
     Dates: start: 20120720
  2. CLOPIDOGREL [Suspect]
     Indication: ACUTE MYOCARDIAL INFARCTION
     Dosage: 17.5 MG (75MG, LOADING DOSE ONLY)
     Route: 048
  3. ENOXAPARIN [Suspect]
     Indication: ACUTE MYOCARDIAL INFARCTION
     Dosage: 30 MG (100 MG, BOLUS)
     Route: 042

REACTIONS (2)
  - CARDIOGENIC SHOCK [None]
  - CARDIO-RESPIRATORY ARREST [None]
